FAERS Safety Report 8249195-2 (Version None)
Quarter: 2012Q1

REPORT INFORMATION
  Report Type: 
  Country: None (occurrence: None)
  Receive Date: 20120314
  Receipt Date: 20120302
  Transmission Date: 20120608
  Serious: Yes (Hospitalization, Other)
  Sender: FDA-Public Use
  Company Number: 2011028415

PATIENT
  Age: 49 Year
  Sex: Female
  Weight: 62.5964 kg

DRUGS (13)
  1. ZEMAIRA [Suspect]
     Indication: ALPHA-1 ANTI-TRYPSIN DEFICIENCY
     Dosage: 60 MG/KG 1X/7 DAYS INTRAVENOUS (NOT OTHERWISE SPECIFIED)
     Dates: start: 20091101
  2. ZEMAIRA [Suspect]
     Indication: ALPHA-1 ANTI-TRYPSIN DEFICIENCY
     Dosage: INTRAVENOUS (NOT OTHERWISE SPECIFIED))
     Route: 042
  3. SODIUM CHLORIDE [Concomitant]
  4. DOXEPIN HCL [Concomitant]
  5. XOPENEX HFA (LEVOSALBUTAMOL) [Concomitant]
  6. ZYBAN [Concomitant]
  7. ESTRADIOL [Concomitant]
  8. LISINOPRIL [Concomitant]
  9. OXYGEN [Concomitant]
  10. SPIRIVA [Concomitant]
  11. PREDNISONE TAB [Concomitant]
  12. ADVAIR 250 (SERETIDE) [Concomitant]
  13. ALBUTEROL [Concomitant]

REACTIONS (5)
  - FATIGUE [None]
  - PULMONARY ARTERIAL HYPERTENSION [None]
  - SOMNOLENCE [None]
  - UPPER RESPIRATORY TRACT INFECTION [None]
  - RESPIRATORY TRACT INFECTION [None]
